FAERS Safety Report 9764195 (Version 1)
Quarter: 2013Q4

REPORT INFORMATION
  Report Type: Report from Study
  Country: AR (occurrence: AR)
  Receive Date: 20131216
  Receipt Date: 20131216
  Transmission Date: 20140711
  Serious: Yes (Other)
  Sender: FDA-Public Use
  Company Number: PHHY2013AR146331

PATIENT
  Sex: Female

DRUGS (2)
  1. DIOVAN [Suspect]
     Indication: HYPERTENSION
     Dosage: 1 DF, (320 MG) PER DAY
     Route: 048
  2. DIOVAN [Suspect]
     Dosage: 1.5 DF, UNK
     Route: 048

REACTIONS (3)
  - Motor dysfunction [Unknown]
  - Hypertension [Unknown]
  - Wrong technique in drug usage process [Unknown]
